FAERS Safety Report 21729881 (Version 1)
Quarter: 2022Q4

REPORT INFORMATION
  Report Type: Spontaneous
  Country: US (occurrence: None)
  Receive Date: 20221214
  Receipt Date: 20221214
  Transmission Date: 20230113
  Serious: Yes (Death)
  Sender: FDA-Public Use
  Company Number: None

PATIENT
  Age: 69 Year
  Sex: Female

DRUGS (13)
  1. CAPECITABINE [Suspect]
     Active Substance: CAPECITABINE
     Indication: Breast cancer
     Dosage: FREQUENCY : TWICE A DAY;?
     Route: 048
     Dates: start: 20221117
  2. MULTIVITAMINS ADULT [Concomitant]
  3. VITAMIN B6(PYRIDOXINE 25MG) [Concomitant]
  4. MULTIVITAMINS ADULT [Concomitant]
  5. VITAMIN C [Concomitant]
  6. MENAQUINONE 6 [Concomitant]
     Active Substance: MENAQUINONE 6
  7. ZINC [Concomitant]
     Active Substance: ZINC
  8. CARTIA XT [Concomitant]
     Active Substance: DILTIAZEM HYDROCHLORIDE
  9. ASPIRIN [Concomitant]
     Active Substance: ASPIRIN
  10. TIKOSYN [Concomitant]
     Active Substance: DOFETILIDE
  11. CREATOR [Concomitant]
  12. OMEPRAZOLE [Concomitant]
     Active Substance: OMEPRAZOLE
  13. DULOXETINE [Concomitant]
     Active Substance: DULOXETINE

REACTIONS (1)
  - Death [None]

NARRATIVE: CASE EVENT DATE: 20221201
